FAERS Safety Report 4385826-5 (Version None)
Quarter: 2004Q2

REPORT INFORMATION
  Report Type: 
  Country: None (occurrence: None)
  Receive Date: 20040628
  Receipt Date: 20040617
  Transmission Date: 20050107
  Serious: Yes (Hospitalization)
  Sender: FDA-Public Use
  Company Number: US-ROCHE-371545

PATIENT
  Age: 47 Year
  Sex: Female

DRUGS (3)
  1. PEGASYS [Suspect]
     Indication: HEPATITIS C
     Route: 065
     Dates: start: 20040603, end: 20040612
  2. COPEGUS [Suspect]
     Indication: HEPATITIS C
     Dosage: DOSAGE REGIMEN WAS REPORTED TO BE 2 TABLETS IN THE MORNING, 3 TABLETS IN THE EVENING.
     Route: 065
     Dates: start: 20040603, end: 20040612
  3. REMERON [Concomitant]
     Indication: DEPRESSION
     Dosage: DOSAGE REGIMEN WAS REPORTED TO BE 1 HS. TAKES 15 MG AT BEDTIME.
     Dates: start: 20040515

REACTIONS (6)
  - CONFUSIONAL STATE [None]
  - EPISTAXIS [None]
  - NAUSEA [None]
  - PANCREATITIS [None]
  - PLATELET COUNT DECREASED [None]
  - PYREXIA [None]
